FAERS Safety Report 4301841-1 (Version None)
Quarter: 2004Q1

REPORT INFORMATION
  Report Type: 
  Country: None (occurrence: None)
  Receive Date: 20040223
  Receipt Date: 20040217
  Transmission Date: 20041129
  Serious: Yes (Other)
  Sender: FDA-Public Use
  Company Number: US-GLAXOSMITHKLINE-A0498521A

PATIENT

DRUGS (1)
  1. COREG [Suspect]
     Route: 048

REACTIONS (1)
  - ATRIAL FLUTTER [None]
